FAERS Safety Report 4287506-3 (Version None)
Quarter: 2004Q1

REPORT INFORMATION
  Report Type: 
  Country: None (occurrence: None)
  Receive Date: 20040209
  Receipt Date: 20030714
  Transmission Date: 20041129
  Serious: No
  Sender: FDA-Public Use
  Company Number: US-GLAXOSMITHKLINE-A0416616A

PATIENT
  Age: 49 Year
  Sex: Female

DRUGS (2)
  1. PAXIL CR [Suspect]
     Dosage: 12.5MG PER DAY
     Route: 048
     Dates: start: 20030530, end: 20030711
  2. FENTANYL [Concomitant]

REACTIONS (10)
  - ANOREXIA [None]
  - COLD SWEAT [None]
  - ENERGY INCREASED [None]
  - FEELING ABNORMAL [None]
  - FEELING HOT [None]
  - INSOMNIA [None]
  - MENTAL DISORDER [None]
  - MYOCLONUS [None]
  - THIRST DECREASED [None]
  - WEIGHT DECREASED [None]
